FAERS Safety Report 15554085 (Version 2)
Quarter: 2019Q1

REPORT INFORMATION
  Report Type: Report from Study
  Country: US (occurrence: US)
  Receive Date: 20181026
  Receipt Date: 20190308
  Transmission Date: 20190417
  Serious: Yes (Hospitalization, Other)
  Sender: FDA-Public Use
  Company Number: US-ROCHE-2204470

PATIENT

DRUGS (3)
  1. RITUXIMAB. [Suspect]
     Active Substance: RITUXIMAB
     Indication: MULTIPLE SCLEROSIS
     Route: 042
  2. RITUXIMAB. [Suspect]
     Active Substance: RITUXIMAB
     Indication: CENTRAL NERVOUS SYSTEM INFLAMMATION
  3. RITUXIMAB. [Suspect]
     Active Substance: RITUXIMAB
     Indication: NEUROMYELITIS OPTICA SPECTRUM DISORDER

REACTIONS (43)
  - Lymphopenia [Unknown]
  - Sepsis [Unknown]
  - Pericardial effusion [Unknown]
  - Coeliac disease [Unknown]
  - Upper respiratory tract infection [Unknown]
  - Pyelonephritis [Unknown]
  - Ear infection [Unknown]
  - Influenza [Unknown]
  - Blood immunoglobulin M decreased [Unknown]
  - Blood immunoglobulin G decreased [Unknown]
  - Bronchopulmonary aspergillosis [Unknown]
  - Cardiac infection [Unknown]
  - Bladder cancer [Unknown]
  - Cellulitis [Unknown]
  - Wound infection staphylococcal [Unknown]
  - Kidney infection [Unknown]
  - Pleural effusion [Unknown]
  - Lung infection [Unknown]
  - Pulmonary embolism [Unknown]
  - Intentional product use issue [Unknown]
  - Pneumonia [Unknown]
  - Breast cancer [Unknown]
  - Type 1 diabetes mellitus [Unknown]
  - Glioblastoma [Unknown]
  - Urinary tract infection [Unknown]
  - Bronchitis [Unknown]
  - Infusion related reaction [Unknown]
  - Bacteraemia [Unknown]
  - Wound infection [Unknown]
  - Neutropenia [Unknown]
  - Gastric infection [Unknown]
  - Osteomyelitis [Unknown]
  - Crohn^s disease [Unknown]
  - Off label use [Unknown]
  - Mastoiditis [Unknown]
  - Appendicitis [Unknown]
  - Hepatitis B reactivation [Unknown]
  - Psoriasis [Unknown]
  - Pneumonia respiratory syncytial viral [Unknown]
  - Colon cancer [Unknown]
  - Clostridium difficile infection [Unknown]
  - Deep vein thrombosis [Unknown]
  - Papillary thyroid cancer [Unknown]
